FAERS Safety Report 7832554-7 (Version None)
Quarter: 2011Q4

REPORT INFORMATION
  Report Type: 
  Country: None (occurrence: None)
  Receive Date: 20111024
  Receipt Date: 20111014
  Transmission Date: 20120403
  Serious: Yes (Hospitalization, Other)
  Sender: FDA-Public Use
  Company Number: US-BIOGENIDEC-2011BI039385

PATIENT
  Age: 56 Year
  Sex: Female

DRUGS (4)
  1. BENADRYL [Concomitant]
     Indication: PREMEDICATION
  2. TYLENOL-500 [Concomitant]
     Indication: PREMEDICATION
  3. AMPYRA [Concomitant]
     Indication: MULTIPLE SCLEROSIS
     Dates: start: 20070701
  4. TYSABRI [Suspect]
     Indication: MULTIPLE SCLEROSIS
     Route: 042
     Dates: start: 20100623

REACTIONS (2)
  - CONVULSION [None]
  - ASTHENIA [None]
